FAERS Safety Report 7895790-X (Version None)
Quarter: 2011Q4

REPORT INFORMATION
  Report Type: 
  Country: None (occurrence: None)
  Receive Date: 20111028
  Receipt Date: 20110621
  Transmission Date: 20120403
  Serious: Yes (Hospitalization)
  Sender: FDA-Public Use
  Company Number: DSA_46987_2011

PATIENT
  Age: 55 Year
  Sex: Male

DRUGS (6)
  1. LISINOPRIL [Concomitant]
  2. SERTRALINE HYDROCHLORIDE [Concomitant]
  3. TRAZODONE HYDROCHLORIDE [Concomitant]
  4. INVESTIGATIONAL DRUG UNSPECIFIED [Concomitant]
  5. WELLBUTRIN [Suspect]
     Indication: DEPRESSION
     Dosage: (DF)
     Dates: start: 20110515, end: 20110614
  6. SIMVASTATIN [Concomitant]

REACTIONS (3)
  - IRRITABILITY [None]
  - MANIA [None]
  - BIPOLAR I DISORDER [None]
